FAERS Safety Report 22294015 (Version 2)
Quarter: 2023Q2

REPORT INFORMATION
  Report Type: Spontaneous
  Country: ES (occurrence: ES)
  Receive Date: 20230508
  Receipt Date: 20230524
  Transmission Date: 20230721
  Serious: Yes (Other)
  Sender: FDA-Public Use
  Company Number: ES-JNJFOC-20230454499

PATIENT
  Age: 72 Year
  Weight: 67.3 kg

DRUGS (5)
  1. SPRAVATO [Suspect]
     Active Substance: ESKETAMINE
     Indication: Product used for unknown indication
     Dates: start: 20230404
  2. ENALAPRIL [Concomitant]
     Active Substance: ENALAPRIL
     Dosage: AT BREAKFAST
     Route: 065
     Dates: start: 2023
  3. MIRTAZAPINE [Concomitant]
     Active Substance: MIRTAZAPINE
     Indication: Depression
     Route: 065
     Dates: start: 2023
  4. ATORVASTATIN [Concomitant]
     Active Substance: ATORVASTATIN
     Dosage: AT SUPPER
     Route: 065
     Dates: start: 2023
  5. SERTRALINE [Concomitant]
     Active Substance: SERTRALINE HYDROCHLORIDE
     Indication: Depression
     Route: 065
     Dates: start: 2023

REACTIONS (1)
  - Tic [Recovering/Resolving]

NARRATIVE: CASE EVENT DATE: 20230410
